FAERS Safety Report 24048742 (Version 6)
Quarter: 2025Q3

REPORT INFORMATION
  Report Type: Report from Study
  Country: CA (occurrence: CA)
  Receive Date: 20240704
  Receipt Date: 20250918
  Transmission Date: 20251021
  Serious: Yes (Other)
  Sender: GLAXOSMITHKLINE
  Company Number: CA-GLAXOSMITHKLINE-CA2024057833

PATIENT
  Age: 58 Year
  Sex: Female

DRUGS (5)
  1. MEPOLIZUMAB [Suspect]
     Active Substance: MEPOLIZUMAB
     Indication: Asthma
     Dosage: 100 MG, Q4W
     Dates: start: 20240506
  2. GLYCOPYRROLATE\INDACATEROL\MOMETASONE FUROATE [Concomitant]
     Active Substance: GLYCOPYRROLATE\INDACATEROL\MOMETASONE FUROATE
     Indication: Product used for unknown indication
  3. INDACATEROL ACETATE\MOMETASONE FUROATE [Concomitant]
     Active Substance: INDACATEROL ACETATE\MOMETASONE FUROATE
     Indication: Product used for unknown indication
  4. VENTOLIN [Concomitant]
     Active Substance: ALBUTEROL SULFATE
     Indication: Product used for unknown indication
  5. QVAR [Concomitant]
     Active Substance: BECLOMETHASONE DIPROPIONATE
     Indication: Product used for unknown indication

REACTIONS (26)
  - Asthmatic crisis [Recovering/Resolving]
  - Dysgeusia [Not Recovered/Not Resolved]
  - Dizziness [Unknown]
  - Asthma [Recovering/Resolving]
  - Fatigue [Unknown]
  - Swollen tongue [Recovered/Resolved]
  - Mouth swelling [Recovered/Resolved]
  - Peripheral swelling [Recovered/Resolved]
  - Ocular hyperaemia [Unknown]
  - Eye irritation [Unknown]
  - Chest pain [Not Recovered/Not Resolved]
  - Dry skin [Unknown]
  - Pain [Unknown]
  - Peripheral coldness [Not Recovered/Not Resolved]
  - Nasopharyngitis [Unknown]
  - Body temperature decreased [Unknown]
  - Chills [Unknown]
  - Back pain [Unknown]
  - Chest discomfort [Not Recovered/Not Resolved]
  - Pulmonary pain [Unknown]
  - Throat irritation [Not Recovered/Not Resolved]
  - Hypersensitivity [Unknown]
  - Illness [Unknown]
  - Headache [Unknown]
  - Nausea [Unknown]
  - Dyspnoea [Unknown]

NARRATIVE: CASE EVENT DATE: 20240501
